FAERS Safety Report 9423581 (Version 3)
Quarter: 2013Q3

REPORT INFORMATION
  Report Type: Spontaneous
  Country: IT (occurrence: IT)
  Receive Date: 20130726
  Receipt Date: 20130916
  Transmission Date: 20140515
  Serious: Yes (Death, Other)
  Sender: FDA-Public Use
  Company Number: IT-ASTRAZENECA-2013SE56444

PATIENT
  Age: 23872 Day
  Sex: Female
  Weight: 80 kg

DRUGS (14)
  1. SEROQUEL [Suspect]
     Indication: SLEEP DISORDER
     Route: 048
     Dates: end: 20111024
  2. SEROQUEL [Interacting]
     Indication: SLEEP DISORDER
     Route: 048
  3. VALIUM [Interacting]
  4. SYCREST [Interacting]
     Indication: MANIA
     Route: 060
     Dates: start: 20120906, end: 20130201
  5. SYCREST [Interacting]
     Indication: BIPOLAR I DISORDER
     Route: 060
     Dates: start: 20120906, end: 20130201
  6. FLUNOX [Interacting]
     Indication: BIPOLAR I DISORDER
     Route: 048
     Dates: start: 2009, end: 20130201
  7. FLUNOX [Interacting]
     Indication: MANIA
     Route: 048
     Dates: start: 2009, end: 20130201
  8. CARBOLITHIUM [Interacting]
     Indication: BIPOLAR I DISORDER
     Route: 048
     Dates: start: 2009, end: 20111024
  9. CARBOLITHIUM [Interacting]
     Indication: MANIA
     Route: 048
     Dates: start: 2009, end: 20111024
  10. QUINOLONES ANTIBIOTIC [Interacting]
     Indication: RESPIRATORY TRACT INFECTION BACTERIAL
     Route: 048
     Dates: start: 20130131, end: 20130201
  11. QUINOLONES ANTIBIOTIC [Interacting]
     Indication: CHRONIC OBSTRUCTIVE PULMONARY DISEASE
     Route: 048
     Dates: start: 20130131, end: 20130201
  12. TAVOR [Interacting]
     Dates: end: 20111024
  13. AKINETON [Interacting]
  14. CIPROFLOXACIN [Interacting]

REACTIONS (7)
  - Drug interaction [Fatal]
  - Chronic obstructive pulmonary disease [Fatal]
  - Cardiac death [Fatal]
  - Pneumonia [Fatal]
  - Respiratory tract infection bacterial [Fatal]
  - Electrocardiogram QT prolonged [Unknown]
  - Mania [Recovered/Resolved]
